FAERS Safety Report 6072188-0 (Version None)
Quarter: 2009Q1

REPORT INFORMATION
  Report Type: 
  Country: None (occurrence: None)
  Receive Date: 20090206
  Receipt Date: 20090206
  Transmission Date: 20090719
  Serious: No
  Sender: FDA-Public Use
  Company Number: None

PATIENT
  Sex: Female
  Weight: 77.27 kg

DRUGS (11)
  1. TRAMADOL HCL [Suspect]
     Dosage: 50MG TABLET 50 MG Q6H ORAL
     Dates: start: 20080918, end: 20090205
  2. AMOXICILLIN [Concomitant]
  3. CALCIUM [Concomitant]
  4. COUMADIN [Concomitant]
  5. DIGOXIN [Concomitant]
  6. FUROSEMIDE [Concomitant]
  7. K-DUR (KCL SLOW RELEASE) [Concomitant]
  8. LIPITOR [Concomitant]
  9. MULTI-VITAMIN [Concomitant]
  10. TAPAZOLE [Concomitant]
  11. TOPROL XL (METOPROLOL SUCCINATE EXTENDED.... [Concomitant]

REACTIONS (2)
  - DRUG INTOLERANCE [None]
  - GASTROINTESTINAL DISORDER [None]
